FAERS Safety Report 23364545 (Version 6)
Quarter: 2025Q1

REPORT INFORMATION
  Report Type: Spontaneous
  Country: US (occurrence: US)
  Receive Date: 20240104
  Receipt Date: 20250211
  Transmission Date: 20250409
  Serious: Yes (Hospitalization)
  Sender: ROCHE
  Company Number: US-ROCHE-3484424

PATIENT
  Age: 21 Year
  Sex: Female
  Weight: 63.5 kg

DRUGS (3)
  1. XOLAIR PFS [Suspect]
     Active Substance: OMALIZUMAB
     Indication: Idiopathic urticaria
     Dosage: FORM STRENGTH: 150 MG/ML
     Route: 058
     Dates: start: 202103
  2. XOLAIR PFS [Suspect]
     Active Substance: OMALIZUMAB
     Indication: Asthma
  3. TAKHZYRO PFS [Concomitant]

REACTIONS (5)
  - Off label use [Unknown]
  - Hereditary angioedema [Unknown]
  - Weight increased [Unknown]
  - Gastrointestinal disorder [Unknown]
  - Weight decreased [Unknown]

NARRATIVE: CASE EVENT DATE: 20240928
